FAERS Safety Report 13225998 (Version 1)
Quarter: 2017Q1

REPORT INFORMATION
  Report Type: Spontaneous
  Country: GB (occurrence: GB)
  Receive Date: 20170213
  Receipt Date: 20170213
  Transmission Date: 20170428
  Serious: Yes (Hospitalization)
  Sender: FDA-Public Use
  Company Number: GB-SA-2017SA021603

PATIENT
  Age: 44 Year
  Sex: Male

DRUGS (8)
  1. STREPTOMYCIN [Concomitant]
     Active Substance: STREPTOMYCIN\STREPTOMYCIN SULFATE
     Indication: LYMPH NODE TUBERCULOSIS
  2. CLARITHROMYCIN. [Suspect]
     Active Substance: CLARITHROMYCIN
     Indication: LYMPH NODE TUBERCULOSIS
     Route: 065
  3. PYRAZINAMIDE. [Suspect]
     Active Substance: PYRAZINAMIDE
     Indication: LYMPH NODE TUBERCULOSIS
     Route: 065
  4. RIFAMPICIN [Suspect]
     Active Substance: RIFAMPIN
     Indication: LYMPH NODE TUBERCULOSIS
     Route: 065
  5. ISONIAZID. [Suspect]
     Active Substance: ISONIAZID
     Indication: LYMPH NODE TUBERCULOSIS
     Route: 065
  6. CIPROFLOXACIN. [Concomitant]
     Active Substance: CIPROFLOXACIN
     Indication: LYMPH NODE TUBERCULOSIS
  7. ETHAMBUTOL [Suspect]
     Active Substance: ETHAMBUTOL HYDROCHLORIDE
     Indication: LYMPH NODE TUBERCULOSIS
     Route: 065
  8. RIFAMPICIN [Suspect]
     Active Substance: RIFAMPIN
     Indication: LYMPH NODE TUBERCULOSIS
     Route: 065

REACTIONS (14)
  - Jaundice [Recovered/Resolved]
  - Subacute hepatic failure [Recovered/Resolved]
  - Prothrombin time prolonged [Recovered/Resolved]
  - Blood alkaline phosphatase increased [Recovered/Resolved]
  - Encephalopathy [Recovered/Resolved]
  - Portal tract inflammation [Recovered/Resolved]
  - Acute hepatic failure [Recovered/Resolved]
  - International normalised ratio increased [Recovered/Resolved]
  - Blood immunoglobulin G increased [Recovered/Resolved]
  - Liver function test abnormal [Recovered/Resolved]
  - Alanine aminotransferase increased [Recovered/Resolved]
  - Computerised tomogram abnormal [Recovered/Resolved]
  - Ascites [Recovered/Resolved]
  - Biopsy liver abnormal [Recovered/Resolved]
